FAERS Safety Report 4315694-9 (Version None)
Quarter: 2004Q1

REPORT INFORMATION
  Report Type: 
  Country: None (occurrence: None)
  Receive Date: 20040310
  Receipt Date: 20040301
  Transmission Date: 20041129
  Serious: Yes (Hospitalization)
  Sender: FDA-Public Use
  Company Number: 200411042BCC

PATIENT
  Age: 63 Year
  Sex: Male
  Weight: 69.4003 kg

DRUGS (2)
  1. ALEVE [Suspect]
     Indication: HEADACHE
     Dosage: 440 MG, BID, ORAL
     Route: 048
     Dates: start: 20000101
  2. ATIVAN [Concomitant]

REACTIONS (1)
  - BLOOD SODIUM DECREASED [None]
